FAERS Safety Report 7164192-6 (Version None)
Quarter: 2010Q4

REPORT INFORMATION
  Report Type: 
  Country: None (occurrence: None)
  Receive Date: 20101215
  Receipt Date: 20101206
  Transmission Date: 20110411
  Serious: Yes (Life-Threatening, Hospitalization)
  Sender: FDA-Public Use
  Company Number: JP-MERCK-1005USA04593

PATIENT
  Age: 77 Year
  Sex: Female
  Weight: 50 kg

DRUGS (7)
  1. JANUVIA [Suspect]
     Indication: TYPE 2 DIABETES MELLITUS
     Route: 048
     Dates: start: 20100518
  2. INNOLET N [Suspect]
     Indication: TYPE 2 DIABETES MELLITUS
     Dosage: 34 UNITS OF MORNING AND 10 UNITS OF EVENING (UNIT: UNDER 1000 UNIT)
     Route: 058
     Dates: end: 20100522
  3. INNOLET N [Suspect]
     Dosage: 34 UNITS OF MORNING AND 10 UNITS OF EVENING (UNIT: UNDER 1000 UNIT)
     Route: 058
     Dates: end: 20100521
  4. BASEN [Concomitant]
     Indication: TYPE 2 DIABETES MELLITUS
     Route: 048
     Dates: end: 20100517
  5. TANATRIL [Concomitant]
     Indication: HYPERTENSION
     Dosage: DIVIDED DOSE FREQUENCY U
     Route: 048
  6. WARFARIN [Concomitant]
     Indication: ATRIAL FIBRILLATION
     Route: 048
  7. METFORMIN HCL [Concomitant]
     Indication: DIABETES MELLITUS
     Route: 048

REACTIONS (2)
  - HYPOGLYCAEMIA [None]
  - LOSS OF CONSCIOUSNESS [None]
